FAERS Safety Report 18136704 (Version 1)
Quarter: 2020Q3

REPORT INFORMATION
  Report Type: Spontaneous
  Country: US (occurrence: US)
  Receive Date: 20200811
  Receipt Date: 20200811
  Transmission Date: 20201103
  Serious: No
  Sender: FDA-Public Use
  Company Number: US-AKRON, INC.-2088483

PATIENT
  Sex: Female

DRUGS (1)
  1. KETOTIFEN FUMARATE OPHTHALMIC SOLUTION [Suspect]
     Active Substance: KETOTIFEN FUMARATE

REACTIONS (2)
  - Eye irritation [Unknown]
  - Eye pruritus [Not Recovered/Not Resolved]
